FAERS Safety Report 19233242 (Version 2)
Quarter: 2022Q1

REPORT INFORMATION
  Report Type: Spontaneous
  Country: US (occurrence: US)
  Receive Date: 20210507
  Receipt Date: 20220201
  Transmission Date: 20220423
  Serious: Yes (Life-Threatening, Hospitalization, Other)
  Sender: FDA-Public Use
  Company Number: US-MLMSERVICE-20210422-2852889-1

PATIENT
  Age: 31 Year
  Sex: Male

DRUGS (1)
  1. OLANZAPINE [Suspect]
     Active Substance: OLANZAPINE
     Indication: Schizoaffective disorder
     Dosage: UNK
     Route: 065

REACTIONS (4)
  - Type 2 diabetes mellitus [Recovered/Resolved]
  - Diabetic ketoacidosis [Recovered/Resolved]
  - Pancreatitis acute [Recovered/Resolved]
  - Hypotension [Recovered/Resolved]
